FAERS Safety Report 19084870 (Version 3)
Quarter: 2021Q3

REPORT INFORMATION
  Report Type: Report from Study
  Country: US (occurrence: US)
  Receive Date: 20210401
  Receipt Date: 20210715
  Transmission Date: 20211014
  Serious: Yes (Hospitalization)
  Sender: FDA-Public Use
  Company Number: US-BIOVITRUM-2021US0107

PATIENT
  Sex: Female

DRUGS (2)
  1. KINERET [Suspect]
     Active Substance: ANAKINRA
     Route: 058
     Dates: start: 20201222
  2. KINERET [Suspect]
     Active Substance: ANAKINRA
     Indication: RHEUMATOID ARTHRITIS
     Route: 058
     Dates: start: 202011

REACTIONS (7)
  - Dehydration [Unknown]
  - Urinary tract infection [Unknown]
  - Injection site mass [Unknown]
  - Product dose omission issue [Unknown]
  - Fatigue [Unknown]
  - Memory impairment [Unknown]
  - Herpes zoster [Unknown]
